FAERS Safety Report 4794287-3 (Version None)
Quarter: 2005Q4

REPORT INFORMATION
  Report Type: 
  Country: None (occurrence: None)
  Receive Date: 20051011
  Receipt Date: 20050930
  Transmission Date: 20060501
  Serious: Yes (Hospitalization)
  Sender: FDA-Public Use
  Company Number: FR-GLAXOSMITHKLINE-B0396667A

PATIENT
  Age: 63 Year
  Sex: Male

DRUGS (8)
  1. ONDANSETRON [Suspect]
     Dosage: 8MG PER DAY
     Route: 048
     Dates: start: 20050524, end: 20050707
  2. AUGMENTIN '125' [Suspect]
     Dosage: 1G PER DAY
     Route: 048
     Dates: start: 20050516, end: 20050625
  3. SOLU-MEDROL [Suspect]
     Dosage: 80MG PER DAY
     Route: 042
     Dates: start: 20050524, end: 20050707
  4. ETHYOL [Suspect]
     Indication: PROPHYLAXIS
     Route: 058
     Dates: start: 20050524, end: 20050707
  5. TENORDATE [Concomitant]
  6. ALLOPURINOL [Concomitant]
     Dosage: 100MG PER DAY
     Route: 048
  7. ESIDRIX [Concomitant]
  8. RADIOTHERAPY [Concomitant]
     Dosage: 50GY PER DAY
     Dates: start: 20050524, end: 20050707

REACTIONS (11)
  - ASTHENIA [None]
  - CHEILITIS [None]
  - CONJUNCTIVAL HYPERAEMIA [None]
  - HYPOALBUMINAEMIA [None]
  - MUCOSAL EROSION [None]
  - MUCOUS MEMBRANE DISORDER [None]
  - NIKOLSKY'S SIGN [None]
  - PENILE ULCERATION [None]
  - PRURIGO [None]
  - SKIN DISORDER [None]
  - TOXIC EPIDERMAL NECROLYSIS [None]
